FAERS Safety Report 5362380-2 (Version None)
Quarter: 2007Q2

REPORT INFORMATION
  Report Type: 
  Country: None (occurrence: None)
  Receive Date: 20070618
  Receipt Date: 20070618
  Transmission Date: 20071010
  Serious: No
  Sender: FDA-Public Use
  Company Number: None

PATIENT
  Sex: Female

DRUGS (2)
  1. NOVOLIN 70/30 [Suspect]
     Dosage: INSULIN
  2. NOVOLIN R [Suspect]
     Dosage: INSULIN

REACTIONS (1)
  - MEDICATION ERROR [None]
